FAERS Safety Report 10028907 (Version 2)
Quarter: 2014Q3

REPORT INFORMATION
  Report Type: Spontaneous
  Country: GB (occurrence: GB)
  Receive Date: 20140321
  Receipt Date: 20140909
  Transmission Date: 20150326
  Serious: Yes (Hospitalization, Disabling, Other)
  Sender: FDA-Public Use
  Company Number: GB-JNJFOC-20140310578

PATIENT
  Age: 76 Year
  Sex: Female

DRUGS (8)
  1. CO-DYDRAMOL [Concomitant]
     Active Substance: ACETAMINOPHEN\DIHYDROCODEINE
     Route: 065
  2. WARFARIN [Concomitant]
     Active Substance: WARFARIN
     Route: 065
     Dates: end: 201402
  3. FUROSEMIDE. [Concomitant]
     Active Substance: FUROSEMIDE
     Route: 065
  4. XARELTO [Suspect]
     Active Substance: RIVAROXABAN
     Indication: CEREBROVASCULAR ACCIDENT PROPHYLAXIS
     Route: 048
     Dates: start: 201402, end: 201403
  5. XARELTO [Suspect]
     Active Substance: RIVAROXABAN
     Indication: ATRIAL FIBRILLATION
     Route: 048
     Dates: start: 201402, end: 201403
  6. ALENDRONIC ACID [Concomitant]
     Active Substance: ALENDRONIC ACID
     Route: 065
  7. SPIRONOLACTONE. [Concomitant]
     Active Substance: SPIRONOLACTONE
     Route: 065
  8. LOSARTAN [Concomitant]
     Active Substance: LOSARTAN
     Route: 065

REACTIONS (4)
  - Pain [Recovering/Resolving]
  - Skin necrosis [Recovering/Resolving]
  - Skin discolouration [Recovering/Resolving]
  - Dermatitis [Recovering/Resolving]

NARRATIVE: CASE EVENT DATE: 20140210
